FAERS Safety Report 9510577 (Version 2)
Quarter: 2013Q3

REPORT INFORMATION
  Report Type: Spontaneous
  Country: US (occurrence: US)
  Receive Date: 20130909
  Receipt Date: 20130920
  Transmission Date: 20140515
  Serious: Yes (Hospitalization, Other)
  Sender: FDA-Public Use
  Company Number: US-PFIZER INC-2013255080

PATIENT
  Age: 83 Year
  Sex: Male

DRUGS (6)
  1. GLIPIZIDE [Suspect]
     Dosage: UNK
     Route: 048
  2. GLIPIZIDE [Suspect]
     Dosage: TWO PILLS ONCE A DAY
     Route: 048
  3. GLIPIZIDE [Suspect]
     Dosage: ONE PILL ONCE A DAY
     Route: 048
  4. GLIPIZIDE [Suspect]
     Dosage: HALF A PILL, 1X/DAY
     Route: 048
  5. GLIPIZIDE [Suspect]
     Dosage: TWO PILLS ONCE A DAY
     Route: 048
  6. VICTOZA [Concomitant]
     Indication: DIABETES MELLITUS
     Dosage: UNK

REACTIONS (4)
  - Loss of consciousness [Unknown]
  - Blood glucose increased [Unknown]
  - Blood disorder [Recovered/Resolved]
  - Drug intolerance [Recovered/Resolved]
